FAERS Safety Report 10379196 (Version 1)
Quarter: 2014Q3

REPORT INFORMATION
  Report Type: Spontaneous
  Country: US (occurrence: US)
  Receive Date: 20140812
  Receipt Date: 20140812
  Transmission Date: 20150326
  Serious: Yes (Hospitalization, Other)
  Sender: FDA-Public Use
  Company Number: US-GLAXOSMITHKLINE-B1022205A

PATIENT
  Age: 42 Year
  Sex: Female

DRUGS (5)
  1. HYDROCORTISONE. [Suspect]
     Active Substance: HYDROCORTISONE
     Indication: T-CELL TYPE ACUTE LEUKAEMIA
     Route: 037
  2. NELARABINE [Suspect]
     Active Substance: NELARABINE
     Indication: PRODUCT USED FOR UNKNOWN INDICATION
     Route: 065
  3. METHOTREXATE [Suspect]
     Active Substance: METHOTREXATE
     Indication: T-CELL TYPE ACUTE LEUKAEMIA
     Route: 065
  4. CYTARABINE. [Suspect]
     Active Substance: CYTARABINE
     Indication: T-CELL TYPE ACUTE LEUKAEMIA
     Route: 037
  5. RADIOTHERAPY [Suspect]
     Active Substance: RADIATION THERAPY
     Indication: T-CELL TYPE ACUTE LEUKAEMIA
     Route: 065

REACTIONS (5)
  - Myelopathy [Recovering/Resolving]
  - Loss of proprioception [Unknown]
  - Hypoaesthesia [Unknown]
  - Balance disorder [Unknown]
  - Muscular weakness [Unknown]
